FAERS Safety Report 15716446 (Version 1)
Quarter: 2018Q4

REPORT INFORMATION
  Report Type: Spontaneous
  Country: US (occurrence: US)
  Receive Date: 20181213
  Receipt Date: 20181213
  Transmission Date: 20190205
  Serious: No
  Sender: FDA-Public Use
  Company Number: US-BIOGEN-2018BI00667732

PATIENT
  Age: 71 Year
  Sex: Male

DRUGS (1)
  1. TYSABRI [Suspect]
     Active Substance: NATALIZUMAB
     Indication: MULTIPLE SCLEROSIS
     Dosage: INFUSED OVER 1 HOUR
     Route: 050
     Dates: start: 20180223

REACTIONS (4)
  - Asthenia [Not Recovered/Not Resolved]
  - Pain in extremity [Not Recovered/Not Resolved]
  - Myalgia [Not Recovered/Not Resolved]
  - Tendon injury [Not Recovered/Not Resolved]

NARRATIVE: CASE EVENT DATE: 20181130
